FAERS Safety Report 20931088 (Version 1)
Quarter: 2022Q2

REPORT INFORMATION
  Report Type: Spontaneous
  Country: US (occurrence: US)
  Receive Date: 20220608
  Receipt Date: 20220608
  Transmission Date: 20220721
  Serious: Yes (Hospitalization)
  Sender: FDA-Public Use
  Company Number: US-MYLANLABS-2022M1042745

PATIENT
  Age: 7 Year
  Sex: Female

DRUGS (9)
  1. FOSPHENYTOIN [Suspect]
     Active Substance: FOSPHENYTOIN
     Indication: Epilepsy
     Dosage: UNK
  2. TOPIRAMATE [Suspect]
     Active Substance: TOPIRAMATE
     Indication: Epilepsy
     Dosage: UNK
  3. MIDAZOLAM [Suspect]
     Active Substance: MIDAZOLAM
     Indication: Epilepsy
     Dosage: CONTINUOUS INFUSION (INFUSION ROUTE)
  4. PENTOBARBITAL [Suspect]
     Active Substance: PENTOBARBITAL
     Indication: Epilepsy
     Dosage: UNK
  5. KETAMINE [Suspect]
     Active Substance: KETAMINE
     Indication: Epilepsy
     Dosage: UNK
  6. LACOSAMIDE [Suspect]
     Active Substance: LACOSAMIDE
     Indication: Epilepsy
     Dosage: UNK
  7. CANNABIDIOL [Suspect]
     Active Substance: CANNABIDIOL
     Indication: Epilepsy
     Dosage: UNK
  8. METHYLPREDNISOLONE [Suspect]
     Active Substance: METHYLPREDNISOLONE
     Indication: Epilepsy
     Dosage: UNK
  9. HUMAN IMMUNOGLOBULIN G [Suspect]
     Active Substance: HUMAN IMMUNOGLOBULIN G
     Indication: Epilepsy
     Dosage: UNK
     Route: 042

REACTIONS (1)
  - Drug ineffective [Unknown]
